FAERS Safety Report 9912034 (Version 1)
Quarter: 2014Q1

REPORT INFORMATION
  Report Type: Spontaneous
  Country: FR (occurrence: FR)
  Receive Date: 20140219
  Receipt Date: 20140219
  Transmission Date: 20141002
  Serious: Yes (Life-Threatening, Other)
  Sender: FDA-Public Use
  Company Number: FR-BAXTER-2014BAX007781

PATIENT
  Age: 39 Year
  Sex: Male

DRUGS (11)
  1. ENDOXAN 2000 MG, LYOPHILISAT POUR SOLUTION INJECTABLE [Suspect]
     Indication: BURKITT^S LYMPHOMA
     Route: 042
     Dates: start: 20120615, end: 20120626
  2. VINCRISTINE SULFATE [Suspect]
     Indication: BURKITT^S LYMPHOMA
     Route: 042
     Dates: start: 20120615, end: 20120626
  3. MABTHERA [Suspect]
     Indication: BURKITT^S LYMPHOMA
     Route: 042
     Dates: start: 20120620, end: 20120626
  4. DOXORUBICINE HYDROCHLORIDE [Suspect]
     Indication: BURKITT^S LYMPHOMA
     Route: 042
     Dates: start: 20120620, end: 20120626
  5. DEXAMETHASONE [Suspect]
     Indication: BURKITT^S LYMPHOMA
     Route: 042
     Dates: start: 20120618, end: 20120627
  6. ARACYTINE [Suspect]
     Indication: BURKITT^S LYMPHOMA
     Route: 042
     Dates: start: 20120618, end: 20120618
  7. TRUVADA [Concomitant]
     Indication: PRODUCT USED FOR UNKNOWN INDICATION
     Route: 065
     Dates: start: 20120613, end: 20120724
  8. TRUVADA [Concomitant]
     Route: 065
     Dates: start: 201308
  9. ISENTRESS [Concomitant]
     Indication: PRODUCT USED FOR UNKNOWN INDICATION
     Route: 065
     Dates: start: 20120613, end: 20120724
  10. ISENTRESS [Concomitant]
     Route: 065
     Dates: start: 201308
  11. EVIPLERA [Concomitant]
     Indication: PRODUCT USED FOR UNKNOWN INDICATION
     Route: 065
     Dates: start: 20120724, end: 201308

REACTIONS (4)
  - Febrile bone marrow aplasia [Recovered/Resolved]
  - Ileus paralytic [Unknown]
  - Tendon pain [Unknown]
  - Colitis [Recovered/Resolved]
